FAERS Safety Report 7992138-7 (Version None)
Quarter: 2011Q4

REPORT INFORMATION
  Report Type: 
  Country: None (occurrence: None)
  Receive Date: 20111219
  Receipt Date: 20111123
  Transmission Date: 20120403
  Serious: No
  Sender: FDA-Public Use
  Company Number: US-ASTRAZENECA-2010SE51392

PATIENT
  Age: 887 Month
  Sex: Female

DRUGS (1)
  1. CRESTOR [Suspect]
     Route: 048

REACTIONS (8)
  - CATARACT [None]
  - VISUAL IMPAIRMENT [None]
  - EYE DISORDER [None]
  - DRUG DOSE OMISSION [None]
  - ILLUSION [None]
  - IRIS HYPOPIGMENTATION [None]
  - VISION BLURRED [None]
  - FEAR [None]
